FAERS Safety Report 20245241 (Version 3)
Quarter: 2022Q2

REPORT INFORMATION
  Report Type: Spontaneous
  Country: US (occurrence: US)
  Receive Date: 20211229
  Receipt Date: 20220609
  Transmission Date: 20220721
  Serious: No
  Sender: FDA-Public Use
  Company Number: US-AVEO ONCOLOGY-2021-AVEO-US003609

PATIENT

DRUGS (5)
  1. FOTIVDA [Suspect]
     Active Substance: TIVOZANIB HYDROCHLORIDE
     Indication: Renal cell carcinoma
     Dosage: 1.34 MG, DAILY, 1 CAP BY MOUTH ONCE DAILY 21 DAYS OFF 7 DAYS
     Route: 048
     Dates: start: 20210725, end: 20211211
  2. NORVASC [Concomitant]
     Active Substance: AMLODIPINE BESYLATE
  3. METOPROLOL SUCCINATE [Concomitant]
     Active Substance: METOPROLOL SUCCINATE
  4. OMEPRAZOLE [Concomitant]
     Active Substance: OMEPRAZOLE
  5. TOPROL XL [Concomitant]
     Active Substance: METOPROLOL SUCCINATE

REACTIONS (5)
  - Dysphonia [Unknown]
  - Nausea [Recovering/Resolving]
  - Product dose omission issue [Unknown]
  - COVID-19 [Recovering/Resolving]
  - Pancreatic enzymes increased [Unknown]

NARRATIVE: CASE EVENT DATE: 20211001
